FAERS Safety Report 6801736-5 (Version None)
Quarter: 2010Q2

REPORT INFORMATION
  Report Type: 
  Country: None (occurrence: None)
  Receive Date: 20100629
  Receipt Date: 20100623
  Transmission Date: 20101027
  Serious: Yes (Hospitalization)
  Sender: FDA-Public Use
  Company Number: US-ELI_LILLY_AND_COMPANY-US201006006327

PATIENT
  Sex: Female

DRUGS (3)
  1. HUMULIN 70/30 [Suspect]
     Indication: DIABETES MELLITUS
     Dosage: 40 U, EACH MORNING
  2. HUMULIN 70/30 [Suspect]
     Dosage: 28 U, EACH EVENING
  3. METFORMIN HCL [Concomitant]
     Dosage: UNK, 2/D

REACTIONS (9)
  - ABDOMINAL PAIN UPPER [None]
  - BLADDER PROLAPSE [None]
  - FATIGUE [None]
  - GAIT DISTURBANCE [None]
  - INTESTINAL PROLAPSE [None]
  - MALAISE [None]
  - MYOCARDIAL INFARCTION [None]
  - POLLAKIURIA [None]
  - VOMITING [None]
